FAERS Safety Report 24906590 (Version 1)
Quarter: 2025Q1

REPORT INFORMATION
  Report Type: Spontaneous
  Country: CH (occurrence: CH)
  Receive Date: 20250130
  Receipt Date: 20250130
  Transmission Date: 20250408
  Serious: Yes (Death, Other)
  Sender: REGENERON
  Company Number: CH-REGENERON PHARMACEUTICALS, INC.-2025-023438

PATIENT
  Age: 76 Year
  Sex: Male

DRUGS (1)
  1. LIBTAYO [Suspect]
     Active Substance: CEMIPLIMAB-RWLC
     Indication: Metastatic squamous cell carcinoma

REACTIONS (3)
  - Ventricular tachycardia [Fatal]
  - Atrioventricular block [Fatal]
  - Myocarditis [Fatal]
